FAERS Safety Report 22353843 (Version 1)
Quarter: 2023Q2

REPORT INFORMATION
  Report Type: Other
  Country: None (occurrence: JP)
  Receive Date: 20230523
  Receipt Date: 20230523
  Transmission Date: 20230722
  Serious: Yes (Hospitalization)
  Sender: FDA-Public Use
  Company Number: JP-Appco Pharma LLC-2141874

PATIENT
  Age: 32 Year
  Sex: Female

DRUGS (7)
  1. ACETAZOLAMIDE [Suspect]
     Active Substance: ACETAZOLAMIDE
     Indication: Intraocular pressure increased
     Route: 048
  2. PREDNISOLONE [Concomitant]
     Active Substance: PREDNISOLONE
     Route: 048
  3. METHOTREXATE [Concomitant]
     Active Substance: METHOTREXATE
     Route: 065
  4. DANTROLENE. [Concomitant]
     Active Substance: DANTROLENE SODIUM
     Route: 065
  5. BACLOFEN [Concomitant]
     Active Substance: BACLOFEN
     Route: 065
  6. ASPIRIN [Concomitant]
     Active Substance: ASPIRIN
     Route: 048
  7. KALLIDINOGENASE [Concomitant]
     Active Substance: KALLIDINOGENASE
     Route: 065

REACTIONS (1)
  - Drug ineffective [Unknown]
